FAERS Safety Report 14485058 (Version 2)
Quarter: 2018Q2

REPORT INFORMATION
  Report Type: Spontaneous
  Country: US (occurrence: US)
  Receive Date: 20180205
  Receipt Date: 20180508
  Transmission Date: 20180711
  Serious: No
  Sender: FDA-Public Use
  Company Number: US-PFIZER INC-2018043575

PATIENT
  Age: 47 Year
  Sex: Female

DRUGS (2)
  1. LETROZOLE. [Suspect]
     Active Substance: LETROZOLE
     Dosage: UNK
  2. IBRANCE [Suspect]
     Active Substance: PALBOCICLIB
     Indication: BREAST CANCER FEMALE
     Dosage: 125 MG, CYCLIC (TAKE 1 CAPSULE BY MOUTH DAILY FOR 21 DAYS ON AND 7 DAYS OFF)
     Route: 048
     Dates: start: 201603

REACTIONS (7)
  - Palmar-plantar erythrodysaesthesia syndrome [Unknown]
  - Skin discolouration [Unknown]
  - Peripheral swelling [Not Recovered/Not Resolved]
  - Malaise [Unknown]
  - Skin lesion [Unknown]
  - Oropharyngeal pain [Unknown]
  - Inflammation [Not Recovered/Not Resolved]
